FAERS Safety Report 7171075-4 (Version None)
Quarter: 2010Q4

REPORT INFORMATION
  Report Type: 
  Country: None (occurrence: None)
  Receive Date: 20101217
  Receipt Date: 20101207
  Transmission Date: 20110411
  Serious: Yes (Other)
  Sender: FDA-Public Use
  Company Number: US-SANOFI-AVENTIS-2010SA075999

PATIENT
  Age: 74 Year
  Sex: Male

DRUGS (12)
  1. MULTAQ [Suspect]
     Indication: VENTRICULAR TACHYCARDIA
     Route: 048
     Dates: start: 20091201
  2. PLAVIX [Concomitant]
     Indication: STENT PLACEMENT
     Route: 048
     Dates: start: 20100701
  3. SPIRONOLACTONE [Concomitant]
  4. PRAVASTATIN [Concomitant]
  5. ASPIRIN [Concomitant]
  6. TOPROL-XL [Concomitant]
  7. TOPROL-XL [Concomitant]
     Dates: start: 20100701
  8. MEXILETINE [Concomitant]
  9. GLUCOSAMINE [Concomitant]
  10. FIBERCON [Concomitant]
  11. MULTI-VITAMINS [Concomitant]
  12. VITAMINE C [Concomitant]

REACTIONS (3)
  - CORONARY ARTERY OCCLUSION [None]
  - RASH [None]
  - RASH MACULAR [None]
